FAERS Safety Report 24654363 (Version 1)
Quarter: 2024Q4

REPORT INFORMATION
  Report Type: Report from Study
  Country: US (occurrence: US)
  Receive Date: 20241122
  Receipt Date: 20241122
  Transmission Date: 20250115
  Serious: Yes (Other)
  Sender: BAYER HEALTHCARE PHARMACEUTICALS INC.
  Company Number: US-BAYER-2024A156246

PATIENT
  Age: 51 Year
  Sex: Male

DRUGS (2)
  1. STIVARGA [Suspect]
     Active Substance: REGORAFENIB MONOHYDRATE
     Indication: Colon cancer metastatic
     Dosage: 80 MG, QD (FOR 7 DAYS THEN INCREASE TO STIVARGA 160MG PER ORAL DAILY FOR 21 DAYS EVERY 28 DAYS)
     Route: 048
     Dates: start: 20241026, end: 20241108
  2. STIVARGA [Suspect]
     Active Substance: REGORAFENIB MONOHYDRATE
     Indication: Colon cancer metastatic
     Dosage: 120 MG, QD
     Route: 048

REACTIONS (7)
  - Blood glucose increased [Not Recovered/Not Resolved]
  - Neuropathy peripheral [Not Recovered/Not Resolved]
  - Diarrhoea [Not Recovered/Not Resolved]
  - Pain in extremity [Unknown]
  - Skin exfoliation [Unknown]
  - Incorrect dose administered [None]
  - Stomatitis [Not Recovered/Not Resolved]

NARRATIVE: CASE EVENT DATE: 20241001
